FAERS Safety Report 23201508 (Version 2)
Quarter: 2024Q3

REPORT INFORMATION
  Report Type: Report from Study
  Country: IT (occurrence: IT)
  Receive Date: 20231118
  Receipt Date: 20240910
  Transmission Date: 20241017
  Serious: Yes (Hospitalization)
  Sender: TEVA
  Company Number: None

PATIENT
  Age: 73 Year
  Sex: Female
  Weight: 64 kg

DRUGS (5)
  1. FLUOROURACIL [Suspect]
     Active Substance: FLUOROURACIL
     Indication: Adenocarcinoma pancreas
     Dosage: TIME INTERVAL: TOTAL: 5-FLUOROURACILE, 2400 MG/M2. TOTAL DOSE: 2000 MG
     Route: 042
     Dates: start: 20230920, end: 20230920
  2. BISOPROLOL FUMARATE [Concomitant]
     Active Substance: BISOPROLOL FUMARATE
     Indication: Hypertension
     Route: 065
  3. OCTREOTIDE ACETATE [Concomitant]
     Active Substance: OCTREOTIDE ACETATE
     Indication: Hypercholesterolaemia
     Route: 065
  4. OXALIPLATIN [Suspect]
     Active Substance: OXALIPLATIN
     Indication: Adenocarcinoma pancreas
     Dosage: TIME INTERVAL: TOTAL: 85 MG/M2. TOTAL DOSE: 120 MG
     Route: 042
     Dates: start: 20230920, end: 20230920
  5. IRINOTECAN [Suspect]
     Active Substance: IRINOTECAN
     Indication: Adenocarcinoma pancreas
     Dosage: TIME INTERVAL: TOTAL: 180 MG/M2. TOTAL DOSE: 250 MG
     Route: 042
     Dates: start: 20230920, end: 20230920

REACTIONS (2)
  - Abdominal pain [Recovering/Resolving]
  - Off label use [Recovering/Resolving]

NARRATIVE: CASE EVENT DATE: 20230922
